FAERS Safety Report 8362496-2 (Version None)
Quarter: 2012Q2

REPORT INFORMATION
  Report Type: 
  Country: None (occurrence: None)
  Receive Date: 20120514
  Receipt Date: 20120503
  Transmission Date: 20120825
  Serious: Yes (Life-Threatening, Hospitalization, Congenital Anomaly, Other)
  Sender: FDA-Public Use
  Company Number: AUR-APL-2012-01993

PATIENT
  Sex: Male

DRUGS (14)
  1. CODEINE PHOSPHATE, GUAIFENESIN (CHERACOL /00693301/) [Suspect]
     Indication: PRODUCT USED FOR UNKNOWN INDICATION
     Dosage: TRANSPLACENTAL
     Route: 064
     Dates: start: 20100325
  2. OLOPATADINE HYDROCHLORIDE [Suspect]
     Indication: PRODUCT USED FOR UNKNOWN INDICATION
     Dosage: TRANSPLACENTAL
     Route: 064
     Dates: start: 20100325
  3. NITROFURANTOIN [Suspect]
     Indication: PRODUCT USED FOR UNKNOWN INDICATION
     Dosage: TRANSPLACENTAL
     Route: 064
  4. CETIRIZINE [Suspect]
     Indication: PRODUCT USED FOR UNKNOWN INDICATION
     Dosage: TRANSPLACENTAL
     Route: 064
     Dates: start: 20100325
  5. AZITHROMYCIN [Suspect]
     Indication: PRODUCT USED FOR UNKNOWN INDICATION
     Dosage: TRANSPLACENTAL
     Route: 064
     Dates: start: 20100325
  6. TOPIRAMATE [Suspect]
     Indication: MIGRAINE
     Dosage: 50 MG (25 MG, 2 IN 1 D), TRANSPLACENTAL
     Route: 064
     Dates: start: 20100315, end: 20100415
  7. AMOXICILLIN [Suspect]
     Indication: PRODUCT USED FOR UNKNOWN INDICATION
     Dosage: TRANSPLACENTAL
     Route: 064
     Dates: start: 20100325
  8. IBUPROFEN [Suspect]
     Indication: PRODUCT USED FOR UNKNOWN INDICATION
     Dosage: TRANSPLACENTAL
     Route: 064
     Dates: start: 20100325
  9. HYDROCODONE BITARTRATE AND ACETAMINOPHEN [Suspect]
     Indication: PRODUCT USED FOR UNKNOWN INDICATION
     Dosage: TRANSPLACENTAL
     Route: 064
     Dates: start: 20100325
  10. SUMATRIPTAN [Suspect]
     Indication: PRODUCT USED FOR UNKNOWN INDICATION
     Dosage: TRANSPLACENTAL
     Route: 064
     Dates: start: 20100325
  11. FLUTICASONE PROPIONATE [Suspect]
     Indication: PRODUCT USED FOR UNKNOWN INDICATION
     Dosage: TRANSPLACENTAL
     Route: 064
     Dates: start: 20100325
  12. CYCLOBENZAPRINE [Suspect]
     Indication: SCIATIC NERVE INJURY
     Dosage: 30 MG (10 MG, 3 IN 1 D), TRANSPLACENTAL
     Route: 064
  13. NAPROXEN [Suspect]
     Indication: PRODUCT USED FOR UNKNOWN INDICATION
     Dosage: TRANSPLACENTAL
     Route: 064
     Dates: start: 20100325
  14. PRENATAL VITAMINS (PRENATAL VIOTAMINS /01549301/) [Suspect]
     Indication: PRODUCT USED FOR UNKNOWN INDICATION
     Dosage: TRANSPLACENTAL
     Route: 064

REACTIONS (22)
  - HYPERBILIRUBINAEMIA NEONATAL [None]
  - CYTOGENETIC ABNORMALITY [None]
  - LARYNGOMALACIA [None]
  - GASTROOESOPHAGEAL REFLUX DISEASE [None]
  - DYSMORPHISM [None]
  - MYOPIA [None]
  - DEVELOPMENTAL DELAY [None]
  - RESPIRATORY TRACT INFECTION [None]
  - CAESAREAN SECTION [None]
  - RESPIRATORY DISORDER NEONATAL [None]
  - MICROGNATHIA [None]
  - MATERNAL DRUGS AFFECTING FOETUS [None]
  - CLEFT PALATE [None]
  - DEAFNESS CONGENITAL [None]
  - PIERRE ROBIN SYNDROME [None]
  - EAR INFECTION [None]
  - CRANIOSYNOSTOSIS [None]
  - TORTICOLLIS [None]
  - RESPIRATORY DISTRESS [None]
  - GLAUCOMA [None]
  - PNEUMONIA ASPIRATION [None]
  - BRONCHIAL HYPERREACTIVITY [None]
